FAERS Safety Report 15686782 (Version 1)
Quarter: 2018Q4

REPORT INFORMATION
  Report Type: Spontaneous
  Country: US (occurrence: US)
  Receive Date: 20181204
  Receipt Date: 20181204
  Transmission Date: 20190205
  Serious: Yes (Death, Hospitalization)
  Sender: FDA-Public Use
  Company Number: US-MYLANLABS-2018M1087975

PATIENT
  Age: 86 Year
  Sex: Male

DRUGS (6)
  1. METOPROLOL. [Concomitant]
     Active Substance: METOPROLOL
     Route: 065
  2. PEMBROLIZUMAB. [Suspect]
     Active Substance: PEMBROLIZUMAB
     Indication: METASTATIC SQUAMOUS CELL CARCINOMA
     Route: 065
  3. SULPHAMETHOXAZOLE/TRIMETHOPRIM [Suspect]
     Active Substance: SULFAMETHOXAZOLE\TRIMETHOPRIM
     Indication: NOCARDIOSIS
     Route: 042
  4. AMIODARONE [Concomitant]
     Active Substance: AMIODARONE
     Route: 065
  5. LATANOPROST. [Concomitant]
     Active Substance: LATANOPROST
     Route: 047
  6. MEROPENEM. [Concomitant]
     Active Substance: MEROPENEM
     Indication: PULMONARY NOCARDIOSIS
     Dosage: 500 MILLIGRAM, Q4H
     Route: 042

REACTIONS (5)
  - Hyponatraemia [Unknown]
  - Hypotension [Unknown]
  - Aspiration [Fatal]
  - Seizure [Fatal]
  - Hyperkalaemia [Unknown]
